FAERS Safety Report 25823111 (Version 3)
Quarter: 2025Q4

REPORT INFORMATION
  Report Type: Spontaneous
  Country: GB (occurrence: GB)
  Receive Date: 20250919
  Receipt Date: 20251121
  Transmission Date: 20260118
  Serious: Yes (Death, Hospitalization)
  Sender: MYLAN
  Company Number: GB-MYLANLABS-2025M1079677

PATIENT
  Sex: Female

DRUGS (4)
  1. CLOZARIL [Suspect]
     Active Substance: CLOZAPINE
     Indication: Schizophrenia
     Dosage: UNK, BID (200MG NIGHTTIME, 75MG MORNING)
     Dates: start: 20050726
  2. CLOZARIL [Suspect]
     Active Substance: CLOZAPINE
     Dosage: UNK, BID (200MG NIGHTTIME, 75MG MORNING)
     Route: 048
     Dates: start: 20050726
  3. CLOZARIL [Suspect]
     Active Substance: CLOZAPINE
     Dosage: UNK, BID (200MG NIGHTTIME, 75MG MORNING)
     Route: 048
     Dates: start: 20050726
  4. CLOZARIL [Suspect]
     Active Substance: CLOZAPINE
     Dosage: UNK, BID (200MG NIGHTTIME, 75MG MORNING)
     Dates: start: 20050726

REACTIONS (2)
  - Pneumonia [Fatal]
  - Fall [Fatal]
